FAERS Safety Report 7637454-3 (Version None)
Quarter: 2011Q3

REPORT INFORMATION
  Report Type: 
  Country: None (occurrence: None)
  Receive Date: 20110726
  Receipt Date: 20110718
  Transmission Date: 20111222
  Serious: Yes (Disabling, Other)
  Sender: FDA-Public Use
  Company Number: PHHY2011CA43130

PATIENT
  Sex: Male

DRUGS (1)
  1. ZOMETA [Suspect]
     Indication: PROSTATE CANCER
     Dosage: UNK

REACTIONS (6)
  - OSTEOARTHRITIS [None]
  - OSTEOLYSIS [None]
  - DEAFNESS [None]
  - TINNITUS [None]
  - EAR PAIN [None]
  - EXOSTOSIS [None]
